FAERS Safety Report 24709926 (Version 1)
Quarter: 2024Q4

REPORT INFORMATION
  Report Type: Spontaneous
  Country: FR (occurrence: FR)
  Receive Date: 20241209
  Receipt Date: 20241209
  Transmission Date: 20250114
  Serious: Yes (Other)
  Sender: NOVARTIS
  Company Number: None

PATIENT
  Age: 66 Year
  Sex: Male

DRUGS (5)
  1. COSENTYX [Suspect]
     Active Substance: SECUKINUMAB
     Indication: Pustular psoriasis
     Dosage: 1 DOSAGE FORM, QMO (1 INJECTION PAR MOIS)
     Route: 058
     Dates: start: 20231024
  2. NEURONTIN [Suspect]
     Active Substance: GABAPENTIN
     Indication: Pain
     Dosage: 5 DOSAGE FORM, QD (1 MATIN, 2 MIDI ET 2 SOIR)
     Route: 048
  3. DILTIAZEM HYDROCHLORIDE [Suspect]
     Active Substance: DILTIAZEM HYDROCHLORIDE
     Indication: Hypertension
     Dosage: 1 DOSAGE FORM, QD (1 COMPRIM? LE MATIN, 300 MG, EXTENDED-RELEASE CAPSULE)
     Route: 048
  4. PANTOPRAZOLE [Suspect]
     Active Substance: PANTOPRAZOLE
     Indication: Product used for unknown indication
     Dosage: 20 MG, QD (1 COMPRIM? PAR JOUR)
     Route: 048
  5. PERINDOPRIL [Suspect]
     Active Substance: PERINDOPRIL
     Indication: Hypertension
     Dosage: 5 MG, QD (5 MG LE MATIN)
     Route: 048

REACTIONS (1)
  - Osteonecrosis [Not Recovered/Not Resolved]

NARRATIVE: CASE EVENT DATE: 20241008
